FAERS Safety Report 5973630-3 (Version None)
Quarter: 2008Q4

REPORT INFORMATION
  Report Type: 
  Country: None (occurrence: None)
  Receive Date: 20081201
  Receipt Date: 20081124
  Transmission Date: 20090506
  Serious: Yes (Death, Hospitalization, Other)
  Sender: FDA-Public Use
  Company Number: FR-ROXANE LABORATORIES, INC.-2008-RO-00272RO

PATIENT
  Age: 32 Year
  Sex: Male

DRUGS (5)
  1. FLUCONAZOLE [Suspect]
     Indication: ANTIFUNGAL PROPHYLAXIS
  2. CASPOFUNGIN [Suspect]
     Indication: ANTIFUNGAL PROPHYLAXIS
  3. VORICONAZOLE [Suspect]
     Indication: SYSTEMIC CANDIDA
  4. STEROIDS [Concomitant]
     Indication: STEM CELL TRANSPLANT
  5. IMMUNOSUPPRESSANTS [Concomitant]
     Indication: ACUTE GRAFT VERSUS HOST DISEASE

REACTIONS (7)
  - ACUTE GRAFT VERSUS HOST DISEASE [None]
  - ACUTE RESPIRATORY DISTRESS SYNDROME [None]
  - BACTERAEMIA [None]
  - CANDIDIASIS [None]
  - CYTOMEGALOVIRUS INFECTION [None]
  - HEPATOTOXICITY [None]
  - SYSTEMIC CANDIDA [None]
